FAERS Safety Report 7067476-5 (Version None)
Quarter: 2010Q4

REPORT INFORMATION
  Report Type: 
  Country: None (occurrence: None)
  Receive Date: 20101028
  Receipt Date: 20101007
  Transmission Date: 20110411
  Serious: Yes (Other)
  Sender: FDA-Public Use
  Company Number: US-AMGEN-USASP2010000031

PATIENT

DRUGS (2)
  1. ENBREL [Suspect]
     Indication: PSORIATIC ARTHROPATHY
     Dosage: 50 MG, 2 TIMES/WK
     Route: 058
     Dates: start: 20051226
  2. ENBREL [Suspect]
     Indication: PSORIASIS

REACTIONS (18)
  - AMNESIA [None]
  - DIARRHOEA [None]
  - EAR INFECTION [None]
  - HAND FRACTURE [None]
  - HYPERTENSION [None]
  - HYPOKINESIA [None]
  - JAW DISORDER [None]
  - LOCALISED INFECTION [None]
  - MUSCULOSKELETAL STIFFNESS [None]
  - PSORIASIS [None]
  - PSORIATIC ARTHROPATHY [None]
  - PUNCTURE SITE REACTION [None]
  - RASH [None]
  - SKIN LACERATION [None]
  - SUICIDAL IDEATION [None]
  - TYPE 2 DIABETES MELLITUS [None]
  - VIITH NERVE PARALYSIS [None]
  - WOUND [None]
